FAERS Safety Report 12108572 (Version 1)
Quarter: 2016Q1

REPORT INFORMATION
  Report Type: Spontaneous
  Country: US (occurrence: US)
  Receive Date: 20160224
  Receipt Date: 20160224
  Transmission Date: 20160526
  Serious: No
  Sender: FDA-Public Use
  Company Number: US-BRISTOL-MYERS SQUIBB COMPANY-BMS-2016-012666

PATIENT
  Sex: Female
  Weight: 57.14 kg

DRUGS (1)
  1. ELIQUIS [Suspect]
     Active Substance: APIXABAN
     Indication: THROMBOSIS PROPHYLAXIS
     Dosage: 5 MG, UNK
     Route: 048

REACTIONS (3)
  - Alopecia [Recovering/Resolving]
  - Feeling abnormal [Unknown]
  - Micturition urgency [Recovering/Resolving]
